FAERS Safety Report 4366849-9 (Version None)
Quarter: 2004Q2

REPORT INFORMATION
  Report Type: 
  Country: None (occurrence: None)
  Receive Date: 20040528
  Receipt Date: 20040301
  Transmission Date: 20050107
  Serious: No
  Sender: FDA-Public Use
  Company Number: US-GLAXOSMITHKLINE-A0500693A

PATIENT
  Sex: Female

DRUGS (3)
  1. BACTROBAN [Suspect]
     Indication: SKIN INFECTION
     Dosage: 1APP TWICE PER DAY
     Route: 061
     Dates: start: 20040225, end: 20040225
  2. KEFLEX [Concomitant]
  3. DIFLUCAN [Concomitant]

REACTIONS (2)
  - RASH [None]
  - SWELLING [None]
